FAERS Safety Report 16938425 (Version 1)
Quarter: 2019Q4

REPORT INFORMATION
  Report Type: Spontaneous
  Country: US (occurrence: US)
  Receive Date: 20190828
  Receipt Date: 20190828
  Transmission Date: 20200122
  Serious: Yes (Hospitalization)
  Sender: FDA-Public Use
  Company Number: None

PATIENT
  Age: 69 Year
  Sex: Female

DRUGS (1)
  1. INLYTA [Suspect]
     Active Substance: AXITINIB
     Indication: RENAL CANCER
     Route: 048
     Dates: start: 20190812, end: 20190816

REACTIONS (5)
  - Hypertension [None]
  - Fall [None]
  - Headache [None]
  - Cerebrovascular accident [None]
  - Hypoaesthesia [None]

NARRATIVE: CASE EVENT DATE: 20190816
